FAERS Safety Report 4603359-5 (Version None)
Quarter: 2005Q1

REPORT INFORMATION
  Report Type: 
  Country: None (occurrence: None)
  Receive Date: 20050309
  Receipt Date: 20050302
  Transmission Date: 20050727
  Serious: Yes (Other)
  Sender: FDA-Public Use
  Company Number: US-MERCK-0503USA00865

PATIENT
  Age: 50 Year
  Sex: Male

DRUGS (11)
  1. CRIXIVAN [Suspect]
     Indication: HIV INFECTION
     Route: 048
  2. NELFINAVIR MESYLATE [Concomitant]
     Route: 065
  3. LAMIVUDINE [Concomitant]
     Route: 065
  4. ZIDOVUDINE [Concomitant]
     Route: 065
  5. METHADONE HYDROCHLORIDE [Suspect]
     Route: 065
  6. FLUCONAZOLE [Suspect]
     Route: 065
  7. DAPSONE [Concomitant]
     Route: 065
  8. NIZATIDINE [Concomitant]
     Route: 065
  9. DIPHENHYDRAMINE CITRATE [Concomitant]
     Route: 065
  10. IBUPROFEN [Concomitant]
     Route: 065
  11. FLEXERIL [Concomitant]
     Route: 048

REACTIONS (4)
  - ELECTROCARDIOGRAM QT PROLONGED [None]
  - NODAL ARRHYTHMIA [None]
  - TORSADE DE POINTES [None]
  - VENTRICULAR TACHYCARDIA [None]
